FAERS Safety Report 11019001 (Version 2)
Quarter: 2015Q2

REPORT INFORMATION
  Report Type: Spontaneous
  Country: US (occurrence: US)
  Receive Date: 20150412
  Receipt Date: 20150525
  Transmission Date: 20150821
  Serious: No
  Sender: FDA-Public Use
  Company Number: US-JNJFOC-20140916470

PATIENT
  Age: 85 Year
  Sex: Female
  Weight: 61.24 kg

DRUGS (1)
  1. LEVAQUIN [Suspect]
     Active Substance: LEVOFLOXACIN
     Indication: URINARY TRACT INFECTION
     Route: 042
     Dates: start: 20140910, end: 20140915

REACTIONS (4)
  - Hypersensitivity [Unknown]
  - Peripheral swelling [Unknown]
  - Joint swelling [Unknown]
  - Peripheral swelling [Unknown]

NARRATIVE: CASE EVENT DATE: 201409
